FAERS Safety Report 9792097 (Version 10)
Quarter: 2014Q4

REPORT INFORMATION
  Report Type: Spontaneous
  Country: US (occurrence: US)
  Receive Date: 20140102
  Receipt Date: 20141031
  Transmission Date: 20150529
  Serious: Yes (Hospitalization, Other)
  Sender: FDA-Public Use
  Company Number: US-009507513-1312USA011687

PATIENT
  Sex: Female
  Weight: 145.13 kg

DRUGS (4)
  1. FOSAMAX [Suspect]
     Active Substance: ALENDRONATE SODIUM
     Dosage: 10 MG, QD
     Route: 048
     Dates: start: 20020903, end: 20021221
  2. FOSAMAX PLUS D [Suspect]
     Active Substance: ALENDRONATE SODIUM\CHOLECALCIFEROL
     Indication: OSTEOPOROSIS
     Dosage: 70 MG/2800 MG, QW
     Route: 048
     Dates: end: 2012
  3. LIPITOR [Concomitant]
     Active Substance: ATORVASTATIN CALCIUM
     Indication: LIPIDS INCREASED
     Dosage: 10-20 MG, UNK
     Dates: start: 200106
  4. FOSAMAX [Suspect]
     Active Substance: ALENDRONATE SODIUM
     Indication: OSTEOPOROSIS
     Dosage: 70 MG, UNK
     Route: 048
     Dates: start: 200106, end: 200812

REACTIONS (51)
  - Jaw fracture [Unknown]
  - Ileus [Recovered/Resolved]
  - Vascular operation [Unknown]
  - Hypoaesthesia [Unknown]
  - Arterial stent insertion [Unknown]
  - Osteopenia [Unknown]
  - Blood thyroid stimulating hormone increased [Unknown]
  - Femur fracture [Recovered/Resolved]
  - Blood glucose increased [Unknown]
  - Liver disorder [Unknown]
  - Bone graft [Unknown]
  - Wrist surgery [Unknown]
  - Soft tissue injury [Unknown]
  - Rib fracture [Unknown]
  - Osteomyelitis [Unknown]
  - Loose tooth [Unknown]
  - Vitamin D deficiency [Recovered/Resolved]
  - Osteoarthritis [Unknown]
  - Intramedullary rod insertion [Unknown]
  - Intramedullary rod insertion [Unknown]
  - Pelvic fracture [Unknown]
  - Road traffic accident [Unknown]
  - Femur fracture [Unknown]
  - Low turnover osteopathy [Unknown]
  - Peripheral vascular disorder [Unknown]
  - Fall [Unknown]
  - Acrochordon [Unknown]
  - Prerenal failure [Unknown]
  - Coronary angioplasty [Unknown]
  - Type 2 diabetes mellitus [Unknown]
  - Back pain [Unknown]
  - Wrist fracture [Unknown]
  - Facial operation [Unknown]
  - Femur fracture [Unknown]
  - Femur fracture [Unknown]
  - Arthritis [Unknown]
  - Carotid artery stent insertion [Unknown]
  - Thrombosis [Unknown]
  - Arteriosclerosis [Unknown]
  - Open reduction of fracture [Unknown]
  - Removal of internal fixation [Unknown]
  - Carotid endarterectomy [Unknown]
  - Hospitalisation [Unknown]
  - Fracture nonunion [Recovering/Resolving]
  - Osteoarthritis [Unknown]
  - Incision site erythema [Unknown]
  - Facial bones fracture [Unknown]
  - Sinusitis [Unknown]
  - Bunion operation [Unknown]
  - Hiatus hernia [Unknown]
  - Device breakage [Unknown]

NARRATIVE: CASE EVENT DATE: 20010814
